FAERS Safety Report 19167555 (Version 1)
Quarter: 2021Q2

REPORT INFORMATION
  Report Type: Other
  Country: CA (occurrence: CA)
  Receive Date: 20210422
  Receipt Date: 20210422
  Transmission Date: 20210717
  Serious: Yes (Other)
  Sender: FDA-Public Use
  Company Number: CA-APOTEX-2021AP009469

PATIENT
  Age: 38 Year
  Sex: Male

DRUGS (10)
  1. AVAMYS [Suspect]
     Active Substance: FLUTICASONE FUROATE
     Indication: PRODUCT USED FOR UNKNOWN INDICATION
     Route: 065
  2. SALBUTAMOL [Suspect]
     Active Substance: ALBUTEROL
     Indication: ASTHMA
     Dosage: 2 DOSAGE FORM, QID
     Route: 065
  3. SPIRIVA RESPIMAT [Suspect]
     Active Substance: TIOTROPIUM BROMIDE
     Indication: ASTHMA
     Dosage: 2 DOSAGE FORM, QD
     Route: 065
  4. ZENHALE [Suspect]
     Active Substance: FORMOTEROL FUMARATE\MOMETASONE FUROATE
     Indication: ASTHMA
     Dosage: 2 DOSAGE FORM, BID
     Route: 065
  5. SINGULAIR [Suspect]
     Active Substance: MONTELUKAST SODIUM
     Indication: ASTHMA
     Dosage: 20 MILLIGRAM, QD
     Route: 065
  6. GLYCOPYRRONIUM BROMIDE [Suspect]
     Active Substance: GLYCOPYRROLATE
     Indication: ASTHMA
     Dosage: 1 DOSAGE FORM, QD
     Route: 065
  7. SINGULAIR [Suspect]
     Active Substance: MONTELUKAST SODIUM
     Dosage: UNK UNK, QD
     Route: 065
  8. SYMBICORT [Suspect]
     Active Substance: BUDESONIDE\FORMOTEROL FUMARATE DIHYDRATE
     Indication: ASTHMA
     Dosage: 2 DOSAGE FORM, TID
     Route: 065
  9. NUCALA [Concomitant]
     Active Substance: MEPOLIZUMAB
     Indication: ASTHMA
     Dosage: 100 MILLIGRAM
     Route: 042
  10. CETIRIZINE HCL / PSEUDOEPHEDRINE HCL [Suspect]
     Active Substance: CETIRIZINE HYDROCHLORIDE\PSEUDOEPHEDRINE HYDROCHLORIDE
     Indication: PRODUCT USED FOR UNKNOWN INDICATION
     Dosage: UNK, QD
     Route: 065

REACTIONS (18)
  - Dyspnoea [Unknown]
  - Pneumonia [Unknown]
  - Papule [Unknown]
  - Nasal congestion [Unknown]
  - Therapeutic product effect incomplete [Unknown]
  - Rash [Unknown]
  - Cough [Unknown]
  - Eosinophil count increased [Unknown]
  - Food allergy [Unknown]
  - Asthma [Unknown]
  - Dermatitis atopic [Unknown]
  - Rhinitis allergic [Unknown]
  - Rhinorrhoea [Unknown]
  - Condition aggravated [Unknown]
  - Blood immunoglobulin E increased [Unknown]
  - Respiratory symptom [Unknown]
  - Vitamin D deficiency [Unknown]
  - Wheezing [Unknown]
